FAERS Safety Report 5283771-4 (Version None)
Quarter: 2007Q2

REPORT INFORMATION
  Report Type: 
  Country: None (occurrence: None)
  Receive Date: 20070402
  Receipt Date: 20070323
  Transmission Date: 20071010
  Serious: Yes (Other)
  Sender: FDA-Public Use
  Company Number: FR-GILEAD-2007-0011058

PATIENT
  Sex: Female

DRUGS (5)
  1. TRUVADA [Suspect]
     Dates: start: 20050101, end: 20061221
  2. REYATAZ [Suspect]
     Dates: start: 20040601, end: 20061221
  3. RITONAVIR [Suspect]
     Dates: start: 20040601, end: 20061221
  4. LEVOTHYROXINE SODIUM [Concomitant]
  5. DIVARIUS [Concomitant]

REACTIONS (2)
  - ABORTION SPONTANEOUS [None]
  - ECTOPIC PREGNANCY [None]
